FAERS Safety Report 5877750-3 (Version None)
Quarter: 2008Q3

REPORT INFORMATION
  Report Type: 
  Country: None (occurrence: None)
  Receive Date: 20080911
  Receipt Date: 20080904
  Transmission Date: 20090109
  Serious: Yes (Hospitalization)
  Sender: FDA-Public Use
  Company Number: US-AMGEN-US302114

PATIENT
  Sex: Male

DRUGS (1)
  1. ENBREL [Suspect]
     Indication: ANKYLOSING SPONDYLITIS
     Route: 065

REACTIONS (4)
  - ANKYLOSING SPONDYLITIS [None]
  - DUODENAL ULCER [None]
  - REFLUX OESOPHAGITIS [None]
  - TOOTH INFECTION [None]
